FAERS Safety Report 8491285-3 (Version None)
Quarter: 2012Q3

REPORT INFORMATION
  Report Type: 
  Country: None (occurrence: None)
  Receive Date: 20120706
  Receipt Date: 20120703
  Transmission Date: 20120928
  Serious: Yes (Other)
  Sender: FDA-Public Use
  Company Number: PHHY2012CA055706

PATIENT
  Sex: Female
  Weight: 60 kg

DRUGS (17)
  1. DIDROCAL [Concomitant]
     Dosage: 400 MG, QD
  2. MIACALCIN [Concomitant]
     Dosage: 200 UL, UNK
  3. ZOLEDRONOC ACID [Suspect]
     Dosage: 5 MG/100 ML, YEARLY
     Route: 042
     Dates: start: 20110407
  4. VITAMIN D [Concomitant]
     Dosage: 1000 IU, UNK
     Dates: start: 20090601
  5. VITAMIN D [Concomitant]
     Dosage: 2000 MG, DAILY
     Dates: start: 20090601
  6. LORAZEPAM [Concomitant]
     Dosage: 2 MG,
  7. BROMAZEPAM [Concomitant]
     Dosage: 3 MG, UNK
  8. EVISTA [Concomitant]
     Dosage: 670 MG, QD
  9. CALCIUM [Concomitant]
     Dosage: 650 MG, QD
     Dates: start: 20090601
  10. CRESTOR [Concomitant]
     Dosage: 10 MG, QD
  11. ZOLEDRONOC ACID [Suspect]
     Indication: OSTEOPOROSIS
     Dosage: 5 MG/100 ML, YEARLY
     Route: 042
     Dates: start: 20100317
  12. CELEBREX [Concomitant]
     Dosage: 200 MG, BID
  13. RABEPRAZOLE SODIUM [Concomitant]
     Dosage: 20 MG, QD
  14. ASPIRIN [Concomitant]
     Dosage: 81 MG, UNK
  15. FORTEO [Concomitant]
     Dosage: 20 MG, QD
  16. CALCIUM [Concomitant]
     Dosage: 650 MG, BID
  17. IMOVANE [Concomitant]
     Dosage: 4.5 MG, QHS

REACTIONS (3)
  - STRESS FRACTURE [None]
  - FOOT FRACTURE [None]
  - PAIN IN EXTREMITY [None]
